FAERS Safety Report 23312246 (Version 1)
Quarter: 2023Q4

REPORT INFORMATION
  Report Type: Spontaneous
  Country: ES (occurrence: ES)
  Receive Date: 20231219
  Receipt Date: 20231219
  Transmission Date: 20240110
  Serious: Yes (Hospitalization, Other)
  Sender: FDA-Public Use
  Company Number: ES-Accord-394325

PATIENT
  Age: 74 Year
  Sex: Female
  Weight: 51.9 kg

DRUGS (28)
  1. GEMCITABINE [Suspect]
     Active Substance: GEMCITABINE
     Indication: Ductal adenocarcinoma of pancreas
     Dosage: ON DAY 1, 8 AND 15
     Route: 065
     Dates: start: 20231108, end: 20231108
  2. GEMCITABINE [Suspect]
     Active Substance: GEMCITABINE
     Dosage: ON DAY 1, 8 AND 15
     Route: 065
     Dates: start: 20231030, end: 20231030
  3. GEMCITABINE [Suspect]
     Active Substance: GEMCITABINE
     Dosage: ON DAY 1, 8 AND 15
     Route: 065
     Dates: start: 20230925, end: 20230925
  4. GEMCITABINE [Suspect]
     Active Substance: GEMCITABINE
     Dosage: ON DAY 1, 8 AND 15
     Route: 065
     Dates: start: 20231009, end: 20231009
  5. PACLITAXEL [Suspect]
     Active Substance: PACLITAXEL
     Indication: Ductal adenocarcinoma of pancreas
     Dosage: ON DAY 1, 8 AND 15
     Route: 065
     Dates: start: 20231009, end: 20231009
  6. PACLITAXEL [Suspect]
     Active Substance: PACLITAXEL
     Dosage: ON DAY 1, 8 AND 15
     Route: 065
     Dates: start: 20231030, end: 20231030
  7. PACLITAXEL [Suspect]
     Active Substance: PACLITAXEL
     Dosage: ON DAY 1, 8 AND 15
     Route: 065
     Dates: start: 20230925, end: 20230925
  8. PACLITAXEL [Suspect]
     Active Substance: PACLITAXEL
     Dosage: ON DAY 1, 8 AND 15
     Route: 065
     Dates: start: 20231108, end: 20231108
  9. URSODIOL [Concomitant]
     Active Substance: URSODIOL
     Indication: Product used for unknown indication
     Route: 065
  10. FESOTERODINE FUMARATE [Concomitant]
     Active Substance: FESOTERODINE FUMARATE
     Indication: Nocturia
     Route: 048
     Dates: start: 20230915
  11. ACETAMINOPHEN [Concomitant]
     Active Substance: ACETAMINOPHEN
     Indication: Abdominal pain upper
     Dosage: AS REQUIRED
     Route: 048
     Dates: start: 20230915
  12. LOPERAMIDE [Concomitant]
     Active Substance: LOPERAMIDE
     Indication: Diarrhoea
     Dosage: AS REQUIRED
     Route: 048
     Dates: start: 202311
  13. TINZAPARIN SODIUM [Concomitant]
     Active Substance: TINZAPARIN SODIUM
     Indication: Thrombosis prophylaxis
     Route: 058
     Dates: start: 202309, end: 202310
  14. TINZAPARIN SODIUM [Concomitant]
     Active Substance: TINZAPARIN SODIUM
     Route: 058
     Dates: start: 20231107
  15. EZETIMIBE\ROSUVASTATIN [Concomitant]
     Active Substance: EZETIMIBE\ROSUVASTATIN
     Indication: Dyslipidaemia
     Route: 048
  16. DEXAMETHASONE [Concomitant]
     Active Substance: DEXAMETHASONE
     Indication: Premedication
     Route: 048
     Dates: start: 20230926
  17. DEXAMETHASONE [Concomitant]
     Active Substance: DEXAMETHASONE
     Indication: Prophylaxis of nausea and vomiting
     Route: 048
     Dates: start: 20231108, end: 20231108
  18. DEXAMETHASONE [Concomitant]
     Active Substance: DEXAMETHASONE
     Indication: Prophylactic chemotherapy
     Route: 048
     Dates: start: 20231030, end: 20231030
  19. PANCREATIN [Concomitant]
     Active Substance: PANCRELIPASE
     Indication: Prophylaxis
     Route: 048
     Dates: start: 20230915
  20. ONDANSETRON [Concomitant]
     Active Substance: ONDANSETRON
     Indication: Prophylaxis of nausea and vomiting
     Route: 048
     Dates: start: 20230926
  21. ONDANSETRON [Concomitant]
     Active Substance: ONDANSETRON
     Indication: Premedication
     Route: 048
     Dates: start: 20231108, end: 20231108
  22. ONDANSETRON [Concomitant]
     Active Substance: ONDANSETRON
     Route: 048
     Dates: start: 20231030, end: 20231030
  23. TINZAPARIN SODIUM [Concomitant]
     Active Substance: TINZAPARIN SODIUM
     Indication: Thrombosis prophylaxis
     Route: 048
     Dates: start: 20231107
  24. ESOMEPRAZOLE [Concomitant]
     Active Substance: ESOMEPRAZOLE
     Indication: Gastrointestinal disorder prophylaxis
     Route: 048
     Dates: start: 20230915
  25. MIRABEGRON [Concomitant]
     Active Substance: MIRABEGRON
     Indication: Nocturia
     Route: 048
     Dates: start: 2022
  26. APIXABAN [Concomitant]
     Active Substance: APIXABAN
     Indication: Thrombosis prophylaxis
     Route: 048
  27. METAMIZOLE [Concomitant]
     Active Substance: METAMIZOLE
     Indication: Abdominal pain upper
     Dosage: MG, AS REQUIRED
     Route: 048
     Dates: start: 20230915
  28. GRANULOCYTE COLONY-STIMULATING FACTOR NOS [Concomitant]
     Active Substance: GRANULOCYTE COLONY-STIMULATING FACTOR NOS
     Indication: Neutropenia
     Route: 058
     Dates: start: 20231116, end: 20231117

REACTIONS (1)
  - Neutropenic colitis [Recovered/Resolved]

NARRATIVE: CASE EVENT DATE: 20231121
